FAERS Safety Report 16038877 (Version 3)
Quarter: 2023Q2

REPORT INFORMATION
  Report Type: Spontaneous
  Country: US (occurrence: US)
  Receive Date: 20190306
  Receipt Date: 20230522
  Transmission Date: 20230721
  Serious: Yes (Hospitalization, Other)
  Sender: FDA-Public Use
  Company Number: PHHY2019US050066

PATIENT
  Age: 42 Year
  Sex: Female

DRUGS (3)
  1. ARGATROBAN [Suspect]
     Active Substance: ARGATROBAN
     Indication: Pulmonary embolism
     Dosage: 2 (MCG/KG/MIN)
     Route: 042
  2. ARGATROBAN [Suspect]
     Active Substance: ARGATROBAN
     Indication: Heparin-induced thrombocytopenia
  3. ARGATROBAN [Suspect]
     Active Substance: ARGATROBAN
     Indication: Deep vein thrombosis

REACTIONS (2)
  - Hypofibrinogenaemia [Recovered/Resolved]
  - Activated partial thromboplastin time prolonged [Unknown]
